FAERS Safety Report 22050088 (Version 1)
Quarter: 2023Q1

REPORT INFORMATION
  Report Type: Spontaneous
  Country: US (occurrence: US)
  Receive Date: 20230301
  Receipt Date: 20230301
  Transmission Date: 20230418
  Serious: No
  Sender: FDA-Public Use
  Company Number: US-drreddys-SPO/USA/23/0160785

PATIENT
  Age: 27 Year

DRUGS (1)
  1. ACCUTANE [Suspect]
     Active Substance: ISOTRETINOIN
     Indication: Product used for unknown indication
     Dosage: RMA ISSUE DATE: 21 OCTOBER 2022 12:36:18 PM, 28 NOVEMBER 2022 03:54:33 PM, 12 JANUARY 2023 12:50:26

REACTIONS (1)
  - Drug intolerance [Unknown]
